FAERS Safety Report 24588632 (Version 1)
Quarter: 2024Q4

REPORT INFORMATION
  Report Type: Spontaneous
  Country: US (occurrence: US)
  Receive Date: 20241107
  Receipt Date: 20241107
  Transmission Date: 20250115
  Serious: No
  Sender: INSMED
  Company Number: US-INSMED, INC.-2024-03085-US

PATIENT
  Sex: Female

DRUGS (8)
  1. ARIKAYCE [Suspect]
     Active Substance: AMIKACIN
     Indication: Mycobacterium abscessus infection
     Dosage: UNK, UNK
     Route: 055
  2. ARIKAYCE [Suspect]
     Active Substance: AMIKACIN
     Indication: Pulmonary cavitation
  3. ZYVOX [Suspect]
     Active Substance: LINEZOLID
     Indication: Mycobacterium abscessus infection
     Dosage: 600 MILLIGRAM, TIW, M,W,F
     Route: 042
  4. ZYVOX [Suspect]
     Active Substance: LINEZOLID
     Indication: Pulmonary cavitation
  5. AMIKACIN [Suspect]
     Active Substance: AMIKACIN
     Indication: Mycobacterium abscessus infection
     Dosage: UNK, UNK
     Route: 065
  6. AMIKACIN [Suspect]
     Active Substance: AMIKACIN
     Indication: Pulmonary cavitation
  7. NUZYRA [Suspect]
     Active Substance: OMADACYCLINE
     Indication: Mycobacterium abscessus infection
     Dosage: UNK, UNK
     Route: 065
  8. NUZYRA [Suspect]
     Active Substance: OMADACYCLINE
     Indication: Pulmonary cavitation

REACTIONS (2)
  - Drug ineffective [Unknown]
  - Off label use [Unknown]
